FAERS Safety Report 24732585 (Version 2)
Quarter: 2025Q1

REPORT INFORMATION
  Report Type: Spontaneous
  Country: SK (occurrence: SK)
  Receive Date: 20241213
  Receipt Date: 20250221
  Transmission Date: 20250409
  Serious: Yes (Death, Other)
  Sender: TEVA
  Company Number: SK-TEVA-VS-3274242

PATIENT
  Sex: Male

DRUGS (1)
  1. RIBAVIRIN [Suspect]
     Active Substance: RIBAVIRIN
     Indication: Hepatitis
     Route: 065
     Dates: start: 2024

REACTIONS (2)
  - Sudden death [Fatal]
  - Hyperbilirubinaemia [Unknown]

NARRATIVE: CASE EVENT DATE: 20240101
